FAERS Safety Report 5708919-6 (Version None)
Quarter: 2008Q2

REPORT INFORMATION
  Report Type: 
  Country: None (occurrence: None)
  Receive Date: 20080416
  Receipt Date: 20080331
  Transmission Date: 20081010
  Serious: Yes (Death)
  Sender: FDA-Public Use
  Company Number: DSA_31678_2008

PATIENT
  Sex: Male
  Weight: 85.7298 kg

DRUGS (3)
  1. ENALAPRIL MALEATE [Suspect]
     Indication: DRUG USE FOR UNKNOWN INDICATION
     Dosage: (10 MG ORAL)
     Route: 048
     Dates: start: 20080321, end: 20080326
  2. MK-8141 STUDY DRUG OR PLACEBO (BLINDED) [Suspect]
     Indication: HYPERTENSION
     Dosage: (ORAL), (ORAL)
     Route: 048
     Dates: start: 20080321, end: 20080326
  3. MK-8141 STUDY DRUG OR PLACEBO (BLINDED) [Suspect]
     Indication: HYPERTENSION
     Dosage: (ORAL), (ORAL)
     Route: 048
     Dates: start: 20080321, end: 20080326

REACTIONS (1)
  - ALCOHOL POISONING [None]
